FAERS Safety Report 21564679 (Version 1)
Quarter: 2022Q4

REPORT INFORMATION
  Report Type: Spontaneous
  Country: CL (occurrence: CL)
  Receive Date: 20221108
  Receipt Date: 20221108
  Transmission Date: 20230113
  Serious: Yes (Hospitalization, Other)
  Sender: FDA-Public Use
  Company Number: CL-SA-SAC20221021001530

PATIENT
  Age: 60 Year
  Sex: Female

DRUGS (9)
  1. ENOXAPARIN SODIUM [Suspect]
     Active Substance: ENOXAPARIN SODIUM
     Indication: Thrombosis
     Dosage: 40 MG, BID
     Route: 058
  2. ENOXAPARIN SODIUM [Suspect]
     Active Substance: ENOXAPARIN SODIUM
     Dosage: 40/40 Q12H
     Route: 058
  3. HEPARIN [Concomitant]
     Active Substance: HEPARIN SODIUM
  4. FRAGMIN [Concomitant]
     Active Substance: DALTEPARIN SODIUM
  5. BOTULINUM TOXIN NOS [Concomitant]
     Active Substance: BOTULINUM TOXIN NOS
  6. NEXIUM [Concomitant]
     Active Substance: ESOMEPRAZOLE MAGNESIUM
  7. ALPRAZOLAM [Concomitant]
     Active Substance: ALPRAZOLAM
     Dosage: 0.5-1 DAILY
  8. TAPENTADOL HYDROCHLORIDE [Concomitant]
     Active Substance: TAPENTADOL HYDROCHLORIDE
  9. MEGANOX [LAMOTRIGINE] [Concomitant]

REACTIONS (33)
  - Nephropathy [Unknown]
  - Nephrolithiasis [Unknown]
  - Post procedural stroke [Unknown]
  - Glomerulonephritis membranous [Unknown]
  - Lacunar infarction [Unknown]
  - Neuropathy peripheral [Unknown]
  - Pancreatitis [Unknown]
  - Oedema [Unknown]
  - Pain [Unknown]
  - Lymphoedema [Unknown]
  - Venous stenosis [Unknown]
  - Peripheral swelling [Unknown]
  - Tendon injury [Unknown]
  - Cyanosis [Unknown]
  - Keratitis [Unknown]
  - Gingivitis [Unknown]
  - Spinal osteoarthritis [Unknown]
  - Hernia [Unknown]
  - Peripheral venous disease [Unknown]
  - Meralgia paraesthetica [Unknown]
  - Device physical property issue [Unknown]
  - Proteinuria [Unknown]
  - Gastrooesophageal reflux disease [Unknown]
  - Insulin resistance [Unknown]
  - Blood cholesterol increased [Unknown]
  - Neuralgia [Unknown]
  - Foot fracture [Unknown]
  - Hypergammaglobulinaemia [Unknown]
  - Gastritis [Unknown]
  - Gingival bleeding [Unknown]
  - Haematoma [Unknown]
  - Osteoporosis [Unknown]
  - Condition aggravated [Unknown]

NARRATIVE: CASE EVENT DATE: 20040101
